FAERS Safety Report 4953390-5 (Version None)
Quarter: 2006Q1

REPORT INFORMATION
  Report Type: 
  Country: None (occurrence: None)
  Receive Date: 20060324
  Receipt Date: 20060320
  Transmission Date: 20060701
  Serious: Yes (Hospitalization)
  Sender: FDA-Public Use
  Company Number: PHRM2006FR01124

PATIENT
  Age: 75 Year
  Sex: Female

DRUGS (5)
  1. TAREG [Suspect]
     Indication: HYPERTENSION
     Dosage: 80 MG, QD
     Route: 048
  2. ALDALIX [Suspect]
     Indication: HYPERTENSION
     Dosage: 1 DF, QD
     Route: 048
  3. ZYLORIC [Concomitant]
     Route: 048
  4. HYPERIUM [Concomitant]
     Route: 048
  5. GLUCOPHAGE [Concomitant]
     Route: 048

REACTIONS (10)
  - ANOREXIA [None]
  - ANURIA [None]
  - ASTHENIA [None]
  - BLADDER CATHETERISATION [None]
  - DEHYDRATION [None]
  - DYSURIA [None]
  - GENERAL PHYSICAL HEALTH DETERIORATION [None]
  - HYPONATRAEMIA [None]
  - PYELONEPHRITIS ACUTE [None]
  - URINARY RETENTION [None]
